FAERS Safety Report 8091338-8 (Version None)
Quarter: 2012Q1

REPORT INFORMATION
  Report Type: 
  Country: None (occurrence: None)
  Receive Date: 20120131
  Receipt Date: 20120119
  Transmission Date: 20120608
  Serious: Yes (Other)
  Sender: FDA-Public Use
  Company Number: US-ELI_LILLY_AND_COMPANY-US201201006411

PATIENT
  Sex: Female

DRUGS (3)
  1. CYMBALTA [Suspect]
     Dosage: UNK, UNKNOWN
  2. XANAX [Concomitant]
  3. VICODIN [Concomitant]
     Indication: BACK PAIN

REACTIONS (2)
  - BONE LOSS [None]
  - MOUTH ULCERATION [None]
